FAERS Safety Report 18506664 (Version 1)
Quarter: 2020Q4

REPORT INFORMATION
  Report Type: Spontaneous
  Country: US (occurrence: US)
  Receive Date: 20201116
  Receipt Date: 20201116
  Transmission Date: 20210114
  Serious: No
  Sender: FDA-Public Use
  Company Number: US-PFIZER INC-2020445386

PATIENT
  Age: 56 Year
  Sex: Female
  Weight: 52.62 kg

DRUGS (2)
  1. EFFEXOR XR [Suspect]
     Active Substance: VENLAFAXINE HYDROCHLORIDE
     Dosage: 150 MG
     Route: 048
     Dates: start: 2018
  2. EFFEXOR XR [Suspect]
     Active Substance: VENLAFAXINE HYDROCHLORIDE
     Dosage: 37.5 MG, ALTERNATE DAY
     Route: 048
     Dates: end: 20201106

REACTIONS (2)
  - Off label use [Unknown]
  - Nystagmus [Not Recovered/Not Resolved]

NARRATIVE: CASE EVENT DATE: 2018
